FAERS Safety Report 11538481 (Version 1)
Quarter: 2015Q3

REPORT INFORMATION
  Report Type: Spontaneous
  Country: FR (occurrence: None)
  Receive Date: 20150921
  Receipt Date: 20150921
  Transmission Date: 20151125
  Serious: Yes (Death)
  Sender: FDA-Public Use
  Company Number: 2015FR0517

PATIENT
  Age: 53 Year
  Sex: Female

DRUGS (5)
  1. HYDROXYCHLOROQUINE (HYDROXYCHLOROQUINE)(HYDROXYCHLOROQUINE) [Concomitant]
  2. KINERET [Suspect]
     Active Substance: ANAKINRA
     Indication: DERMATOMYOSITIS
     Route: 058
     Dates: start: 201104
  3. PREDNISONE. [Concomitant]
     Active Substance: PREDNISONE
  4. METHOTREXATE [Concomitant]
     Active Substance: METHOTREXATE
  5. IVIG ( I MMUNOGLOBUL I N HUMAN NORMAL )(IMMUNOGLOBULIN HUMAN NORMAL) [Concomitant]

REACTIONS (1)
  - Pneumonia aspiration [None]
